FAERS Safety Report 5381664-5 (Version None)
Quarter: 2007Q3

REPORT INFORMATION
  Report Type: 
  Country: None (occurrence: None)
  Receive Date: 20070705
  Receipt Date: 20070705
  Transmission Date: 20080115
  Serious: Yes (Hospitalization)
  Sender: FDA-Public Use
  Company Number: None

PATIENT
  Sex: Male
  Weight: 109 kg

DRUGS (7)
  1. CYCLOPHOSPHAMIDE [Suspect]
     Dosage: 2330 MG
  2. CYTARABINE [Suspect]
     Dosage: 40 MG
  3. DEXAMETHASONE 0.5MG TAB [Suspect]
     Dosage: 120 MG
  4. LEUCOVORIN CALCIUM [Suspect]
     Dosage: 7689 MG
  5. METHOTREXATE [Suspect]
     Dosage: 3494 MG
  6. RITUXIMAB (MOAB C2B8 ANTI CD20, CHIMERIC) [Suspect]
     Dosage: 874 MG
  7. VINCRISITNE SULFATE [Suspect]
     Dosage: 2 MG

REACTIONS (2)
  - MUCOSAL INFLAMMATION [None]
  - PYREXIA [None]
